FAERS Safety Report 17884562 (Version 1)
Quarter: 2020Q2

REPORT INFORMATION
  Report Type: Spontaneous
  Country: US (occurrence: US)
  Receive Date: 20200611
  Receipt Date: 20200611
  Transmission Date: 20200714
  Serious: No
  Sender: FDA-Public Use
  Company Number: None

PATIENT
  Sex: Female
  Weight: 63.9 kg

DRUGS (5)
  1. CEPHALEXIN. [Suspect]
     Active Substance: CEPHALEXIN
     Indication: SKIN DISORDER
  2. CALCIUM [Concomitant]
     Active Substance: CALCIUM
  3. LEVOTHYROXINE. [Concomitant]
     Active Substance: LEVOTHYROXINE
  4. HEMPZ [Concomitant]
  5. VITAMIN D3 [Concomitant]
     Active Substance: CHOLECALCIFEROL

REACTIONS (9)
  - Fatigue [None]
  - Confusional state [None]
  - Asthenia [None]
  - Blister [None]
  - Pruritus [None]
  - Drug hypersensitivity [None]
  - Erythema [None]
  - Skin disorder [None]
  - Skin swelling [None]
